FAERS Safety Report 7534595-6 (Version None)
Quarter: 2011Q2

REPORT INFORMATION
  Report Type: 
  Country: None (occurrence: None)
  Receive Date: 20110609
  Receipt Date: 20100415
  Transmission Date: 20111010
  Serious: Yes (Death, Life-Threatening, Disabling, Other)
  Sender: FDA-Public Use
  Company Number: PHHY2009JP37533

PATIENT
  Sex: Male

DRUGS (5)
  1. TAMSULOSIN HYDROCHLORIDE [Concomitant]
     Indication: BENIGN PROSTATIC HYPERPLASIA
     Dosage: 0.2 MG, UNK
     Route: 048
     Dates: start: 20080202, end: 20080302
  2. PROSTAL [Concomitant]
     Indication: BENIGN PROSTATIC HYPERPLASIA
     Dosage: 50 MG, UNK
     Route: 048
     Dates: start: 20080202, end: 20080302
  3. ZOLEDRONIC ACID [Suspect]
     Indication: METASTASES TO BONE
     Dosage: 4 MG, (SINGLE DOSE)
     Route: 042
     Dates: start: 20080202, end: 20080202
  4. TANATRIL [Concomitant]
     Indication: HYPERTENSION
     Dosage: 10 MG, UNK
     Route: 048
     Dates: start: 20080202, end: 20080302
  5. NORVASC [Concomitant]
     Indication: HYPERTENSION
     Dosage: 5 MG, UNK
     Route: 048
     Dates: start: 20080202, end: 20080302

REACTIONS (5)
  - HEMIPLEGIA [None]
  - CONVULSION [None]
  - METASTASES TO CENTRAL NERVOUS SYSTEM [None]
  - MUSCULAR WEAKNESS [None]
  - GENERAL PHYSICAL HEALTH DETERIORATION [None]
